FAERS Safety Report 5834947-6 (Version None)
Quarter: 2008Q3

REPORT INFORMATION
  Report Type: 
  Country: None (occurrence: None)
  Receive Date: 20080806
  Receipt Date: 20080728
  Transmission Date: 20090109
  Serious: Yes (Life-Threatening, Other)
  Sender: FDA-Public Use
  Company Number: US-JNJFOC-20080606791

PATIENT
  Sex: Female

DRUGS (4)
  1. REMICADE [Suspect]
     Indication: CROHN'S DISEASE
     Route: 042
  2. AZATHIOPRINE [Concomitant]
     Indication: CROHN'S DISEASE
  3. PRILOSEC [Concomitant]
  4. QUESTRAN [Concomitant]

REACTIONS (1)
  - DIFFUSE LARGE B-CELL LYMPHOMA [None]
